FAERS Safety Report 4514195-2 (Version None)
Quarter: 2004Q4

REPORT INFORMATION
  Report Type: 
  Country: None (occurrence: None)
  Receive Date: 20041124
  Receipt Date: 20040927
  Transmission Date: 20050328
  Serious: No
  Sender: FDA-Public Use
  Company Number: 2004UW20226

PATIENT
  Age: 46 Year
  Sex: Female

DRUGS (11)
  1. SEROQUEL [Suspect]
  2. LOPRESSOR [Suspect]
  3. M-ESLON [Suspect]
  4. NO MATCH [Suspect]
  5. METHOTREXATE [Suspect]
  6. NOZINAN [Suspect]
     Dosage: 200 MG
  7. PARIET [Suspect]
  8. PROMETRIUM [Suspect]
  9. SEPTRA [Suspect]
  10. SULFASALAZINE [Suspect]
  11. TRAZODONE [Suspect]

REACTIONS (2)
  - FATIGUE [None]
  - HALLUCINATION [None]
